FAERS Safety Report 5417017-0 (Version None)
Quarter: 2007Q3

REPORT INFORMATION
  Report Type: 
  Country: None (occurrence: None)
  Receive Date: 20070718
  Receipt Date: 20060607
  Transmission Date: 20080115
  Serious: Yes (Hospitalization)
  Sender: FDA-Public Use
  Company Number: 2006058470

PATIENT
  Age: 61 Year
  Sex: Female
  Weight: 68.9467 kg

DRUGS (6)
  1. CELEBREX [Suspect]
     Indication: ILL-DEFINED DISORDER
     Dosage: 200 MG (200 MG,1 IN 1 D)
     Dates: start: 20010118, end: 20050331
  2. AXID [Concomitant]
  3. CELEXA [Concomitant]
  4. LIPITOR [Concomitant]
  5. MEDROL [Concomitant]
  6. VICODIN [Concomitant]

REACTIONS (7)
  - CEREBROVASCULAR ACCIDENT [None]
  - EYE DISORDER [None]
  - FACIAL PALSY [None]
  - FACIAL PARESIS [None]
  - MUSCLE INJURY [None]
  - PNEUMONIA [None]
  - ROAD TRAFFIC ACCIDENT [None]
